FAERS Safety Report 8901725 (Version 1)
Quarter: 2012Q4

REPORT INFORMATION
  Report Type: Spontaneous
  Country: US (occurrence: None)
  Receive Date: 20121105
  Receipt Date: 20121105
  Transmission Date: 20130627
  Serious: Yes (Other)
  Sender: FDA-Public Use
  Company Number: 2012SUN00201

PATIENT
  Age: 23 Year
  Sex: Female

DRUGS (2)
  1. PHENYTOIN SODIUM [Suspect]
     Indication: CONVULSION DISORDER
  2. PHENOBARBITAL [Suspect]
     Indication: CONVULSION DISORDER

REACTIONS (5)
  - Pseudohypoparathyroidism [None]
  - Convulsion [None]
  - Vitamin D deficiency [None]
  - Primary hypothyroidism [None]
  - Hypocalcaemia [None]
